FAERS Safety Report 10529986 (Version 3)
Quarter: 2015Q1

REPORT INFORMATION
  Report Type: Spontaneous
  Country: JP (occurrence: JP)
  Receive Date: 20141021
  Receipt Date: 20150115
  Transmission Date: 20150720
  Serious: Yes (Death, Disabling)
  Sender: FDA-Public Use
  Company Number: JP-ELI_LILLY_AND_COMPANY-JP201410005588

PATIENT
  Age: 71 Year
  Sex: Male
  Weight: 47.8 kg

DRUGS (8)
  1. CARBOPLATIN. [Suspect]
     Active Substance: CARBOPLATIN
     Indication: LUNG ADENOCARCINOMA
     Dosage: 380 MG, UNK
     Route: 042
     Dates: start: 20120313, end: 20120313
  2. URSO [Concomitant]
     Active Substance: URSODIOL
     Indication: PROPHYLAXIS
     Dosage: 300 MG, UNK
     Route: 048
     Dates: start: 20110323, end: 20120416
  3. BEVACIZUMAB [Suspect]
     Active Substance: BEVACIZUMAB
     Indication: LUNG ADENOCARCINOMA
     Dosage: UNK
     Route: 042
     Dates: start: 20120313, end: 20120313
  4. NEUER [Concomitant]
     Active Substance: CETRAXATE HYDROCHLORIDE
     Indication: PROPHYLAXIS
     Dosage: 600 MG, UNK
     Route: 048
  5. ALIMTA [Suspect]
     Active Substance: PEMETREXED DISODIUM
     Indication: LUNG ADENOCARCINOMA
     Dosage: 700 MG, UNK
     Route: 042
     Dates: start: 20120313, end: 20120313
  6. EXCELASE [Concomitant]
     Indication: PROPHYLAXIS
     Dosage: 3 DF, UNK
     Route: 048
  7. SULBACILLIN [Concomitant]
     Active Substance: AMPICILLIN SODIUM\SULBACTAM SODIUM
     Indication: PYREXIA
     Dosage: 3.0 G, UNK
     Route: 042
     Dates: start: 20120410, end: 20120419
  8. PANVITAN [Concomitant]
     Indication: PROPHYLAXIS
     Dosage: 1 G, UNK
     Route: 048
     Dates: start: 20120306

REACTIONS (6)
  - Leukoencephalopathy [Not Recovered/Not Resolved]
  - Pneumonia aspiration [Fatal]
  - Vomiting [Unknown]
  - Off label use [Unknown]
  - Decreased appetite [Unknown]
  - Neutrophil count decreased [Unknown]

NARRATIVE: CASE EVENT DATE: 20120314
